FAERS Safety Report 9298742 (Version 1)
Quarter: 2013Q2

REPORT INFORMATION
  Report Type: Report from Study
  Country: ZW (occurrence: ZW)
  Receive Date: 20130520
  Receipt Date: 20130520
  Transmission Date: 20140414
  Serious: Yes (Other)
  Sender: FDA-Public Use
  Company Number: ZW-ABBOTT-13P-190-1088701-00

PATIENT
  Age: 51 Year
  Sex: Male

DRUGS (2)
  1. ALUVIA [Suspect]
     Indication: HIV INFECTION
     Route: 048
     Dates: start: 20100715
  2. COTRIMOXAZOLE [Concomitant]
     Indication: PRODUCT USED FOR UNKNOWN INDICATION
     Dates: start: 20040615

REACTIONS (4)
  - Polyuria [Unknown]
  - Polydipsia [Unknown]
  - Hyperglycaemia [Recovering/Resolving]
  - Pneumonia [Recovered/Resolved]
